FAERS Safety Report 7888889-5 (Version None)
Quarter: 2011Q4

REPORT INFORMATION
  Report Type: 
  Country: None (occurrence: None)
  Receive Date: 20111031
  Receipt Date: 20101019
  Transmission Date: 20120403
  Serious: Yes (Hospitalization, Other)
  Sender: FDA-Public Use
  Company Number: CA-1180682

PATIENT
  Age: 75 Year
  Sex: Male
  Weight: 90.7194 kg

DRUGS (1)
  1. VIGAMOX [Suspect]
     Indication: POSTOPERATIVE CARE
     Dosage: (QID - Q1H OPHTHALMIC)
     Route: 047
     Dates: start: 20100108, end: 20100116

REACTIONS (3)
  - ENDOPHTHALMITIS [None]
  - DRUG INEFFECTIVE [None]
  - DRUG RESISTANCE [None]
